FAERS Safety Report 7579100-3 (Version None)
Quarter: 2011Q2

REPORT INFORMATION
  Report Type: 
  Country: None (occurrence: None)
  Receive Date: 20110628
  Receipt Date: 20110624
  Transmission Date: 20111010
  Serious: Yes (Other)
  Sender: FDA-Public Use
  Company Number: FR-PFIZER INC-2011140515

PATIENT
  Age: 38 Year
  Sex: Female

DRUGS (1)
  1. DOSTINEX [Suspect]
     Indication: SECRETORY ADENOMA OF PITUITARY
     Dosage: 0.5 MG, 1X/DAY
     Route: 048
     Dates: start: 20090101, end: 20110501

REACTIONS (1)
  - RETROPERITONEAL FIBROSIS [None]
